FAERS Safety Report 5826605-9 (Version None)
Quarter: 2008Q3

REPORT INFORMATION
  Report Type: 
  Country: None (occurrence: None)
  Receive Date: 20080728
  Receipt Date: 20080728
  Transmission Date: 20090109
  Serious: Yes (Hospitalization)
  Sender: FDA-Public Use
  Company Number: None

PATIENT
  Sex: Female
  Weight: 62.3 kg

DRUGS (15)
  1. CARBOPLATIN [Suspect]
     Dosage: 622 MG
     Dates: end: 20080718
  2. TAXOTERE [Suspect]
     Dosage: 114 MG
     Dates: end: 20080718
  3. BENADRYL [Concomitant]
  4. CALCIUM [Concomitant]
  5. COMPAZINE [Concomitant]
  6. COZAAR [Concomitant]
  7. DECADRON [Concomitant]
  8. EMEND [Concomitant]
  9. FAMOTIDINE [Concomitant]
  10. IBUPROFEN TABLETS [Concomitant]
  11. LORAZEPAM [Concomitant]
  12. PERCOCET [Concomitant]
  13. PREPERATION H [Concomitant]
  14. VITAMEN C [Concomitant]
  15. ZOFRAN [Concomitant]

REACTIONS (23)
  - ABDOMINAL PAIN [None]
  - ASTHENIA [None]
  - CONSTIPATION [None]
  - DIZZINESS [None]
  - DYSPEPSIA [None]
  - DYSPNOEA [None]
  - FATIGUE [None]
  - HAEMATOCRIT DECREASED [None]
  - HAEMOGLOBIN DECREASED [None]
  - HYPOTENSION [None]
  - IMPAIRED HEALING [None]
  - INFECTION [None]
  - INTESTINAL PERFORATION [None]
  - NAUSEA [None]
  - OEDEMA PERIPHERAL [None]
  - PLATELET COUNT DECREASED [None]
  - PYREXIA [None]
  - RECTAL HAEMORRHAGE [None]
  - SUTURE RELATED COMPLICATION [None]
  - TACHYCARDIA [None]
  - TINNITUS [None]
  - URINE OUTPUT DECREASED [None]
  - WHITE BLOOD CELL COUNT DECREASED [None]
